FAERS Safety Report 8539798-X (Version None)
Quarter: 2012Q3

REPORT INFORMATION
  Report Type: 
  Country: None (occurrence: None)
  Receive Date: 20120726
  Receipt Date: 20120711
  Transmission Date: 20120928
  Serious: Yes (Other)
  Sender: FDA-Public Use
  Company Number: US-ENDO PHARMACEUTICALS INC.-OPER20120707

PATIENT
  Age: 36 Year
  Sex: Male

DRUGS (1)
  1. OPANA ER [Suspect]
     Indication: DRUG DIVERSION
     Dosage: N/A

REACTIONS (2)
  - DRUG DEPENDENCE [None]
  - DRUG DIVERSION [None]
